FAERS Safety Report 16613594 (Version 2)
Quarter: 2019Q3

REPORT INFORMATION
  Report Type: Spontaneous
  Country: DE (occurrence: DE)
  Receive Date: 20190723
  Receipt Date: 20190813
  Transmission Date: 20191004
  Serious: Yes (Other)
  Sender: FDA-Public Use
  Company Number: DE-CELLTRION INC.-2019DE023003

PATIENT

DRUGS (1)
  1. RITUXIMAB (UNKNOWN) [Suspect]
     Active Substance: RITUXIMAB
     Indication: ENCEPHALITIS AUTOIMMUNE
     Dosage: UNK

REACTIONS (9)
  - Wound dehiscence [Unknown]
  - Product use in unapproved indication [Unknown]
  - Ear pain [Unknown]
  - Deafness [Unknown]
  - Otorrhoea [Unknown]
  - Erythema [Unknown]
  - Leukocytosis [Unknown]
  - C-reactive protein increased [Unknown]
  - Otitis media acute [Unknown]
